FAERS Safety Report 8588219 (Version 5)
Quarter: 2015Q1

REPORT INFORMATION
  Report Type: Report from Study
  Country: GB (occurrence: GB)
  Receive Date: 20120531
  Receipt Date: 20150325
  Transmission Date: 20150721
  Serious: Yes (Other)
  Sender: FDA-Public Use
  Company Number: GB-ROCHE-1073263

PATIENT
  Age: 84 Year
  Sex: Male
  Weight: 76.27 kg

DRUGS (1)
  1. RANIBIZUMAB [Suspect]
     Active Substance: RANIBIZUMAB
     Indication: AGE-RELATED MACULAR DEGENERATION
     Route: 050
     Dates: start: 20100421

REACTIONS (2)
  - Retinal haemorrhage [Unknown]
  - Subretinal haematoma [Unknown]

NARRATIVE: CASE EVENT DATE: 20120524
